FAERS Safety Report 5697218-7 (Version None)
Quarter: 2008Q2

REPORT INFORMATION
  Report Type: 
  Country: None (occurrence: None)
  Receive Date: 20080403
  Receipt Date: 20071019
  Transmission Date: 20081010
  Serious: Yes (Other)
  Sender: FDA-Public Use
  Company Number: 2007-0013915

PATIENT
  Sex: Male

DRUGS (1)
  1. TRUVADA [Suspect]

REACTIONS (1)
  - FANCONI SYNDROME ACQUIRED [None]
